FAERS Safety Report 6968339-3 (Version None)
Quarter: 2010Q3

REPORT INFORMATION
  Report Type: 
  Country: None (occurrence: None)
  Receive Date: 20100907
  Receipt Date: 20100824
  Transmission Date: 20110219
  Serious: Yes (Death)
  Sender: FDA-Public Use
  Company Number: ES-ROCHE-723175

PATIENT
  Sex: Female
  Weight: 57 kg

DRUGS (6)
  1. BEVACIZUMAB [Suspect]
     Indication: COLORECTAL CANCER
     Dosage: LAST DOSE PRIOR TO SAE ON 19 JUL 2010; PERMANENTLY STOPPED
     Route: 042
     Dates: start: 20100607, end: 20100719
  2. CAPECITABINE [Suspect]
     Indication: COLORECTAL CANCER
     Dosage: DAYS 2 -15; LAST DOSE PRIOR TO SAE ON 01 AUG 2010; PERMANENTLY DISCONTINUED
     Route: 048
     Dates: start: 20100608, end: 20100801
  3. OXALIPLATIN [Suspect]
     Indication: COLORECTAL CANCER
     Dosage: LAST DOSE PRIOR TO SAE ON 19 JUL 2010; PERMANENTLY STOPPED
     Route: 042
     Dates: start: 20100607, end: 20100719
  4. PANTOPRAZOLE SODIUM [Concomitant]
     Dosage: TOTAL DOSE: 1 COMP.
     Dates: start: 20100524
  5. IBUPROFEN [Concomitant]
     Dates: start: 20100524
  6. AERO RED [Concomitant]
     Dates: start: 20100524

REACTIONS (1)
  - PULMONARY EMBOLISM [None]
